FAERS Safety Report 19023961 (Version 2)
Quarter: 2021Q2

REPORT INFORMATION
  Report Type: Spontaneous
  Country: US (occurrence: US)
  Receive Date: 20210318
  Receipt Date: 20210513
  Transmission Date: 20210717
  Serious: Yes (Other)
  Sender: FDA-Public Use
  Company Number: US-BIOGEN-2021BI00991213

PATIENT
  Sex: Female

DRUGS (2)
  1. VUMERITY [Suspect]
     Active Substance: DIROXIMEL FUMARATE
     Indication: MULTIPLE SCLEROSIS
     Route: 050
  2. TECFIDERA [Suspect]
     Active Substance: DIMETHYL FUMARATE
     Indication: MULTIPLE SCLEROSIS
     Route: 065
     Dates: start: 20200204

REACTIONS (5)
  - General physical health deterioration [Not Recovered/Not Resolved]
  - Seizure [Recovered/Resolved]
  - Brain neoplasm [Unknown]
  - Amnesia [Not Recovered/Not Resolved]
  - Tooth fracture [Not Recovered/Not Resolved]
